APPROVED DRUG PRODUCT: PRIMAXIN
Active Ingredient: CILASTATIN SODIUM; IMIPENEM
Strength: EQ 750MG BASE/VIAL;750MG/VIAL
Dosage Form/Route: POWDER;INTRAMUSCULAR
Application: N050630 | Product #002
Applicant: MERCK AND CO INC
Approved: Dec 14, 1990 | RLD: No | RS: No | Type: DISCN